FAERS Safety Report 16041109 (Version 1)
Quarter: 2019Q1

REPORT INFORMATION
  Report Type: Spontaneous
  Country: GB (occurrence: GB)
  Receive Date: 20190306
  Receipt Date: 20190306
  Transmission Date: 20190418
  Serious: Yes (Hospitalization)
  Sender: FDA-Public Use
  Company Number: GB-ACCORD-110592

PATIENT
  Age: 78 Year
  Sex: Female
  Weight: 92 kg

DRUGS (8)
  1. APIXABAN [Concomitant]
     Active Substance: APIXABAN
  2. PREGABALIN. [Concomitant]
     Active Substance: PREGABALIN
  3. PARACETAMOL [Concomitant]
     Active Substance: ACETAMINOPHEN
  4. DIGOXIN. [Concomitant]
     Active Substance: DIGOXIN
  5. AMITRIPTYLINE [Suspect]
     Active Substance: AMITRIPTYLINE
     Indication: HEADACHE
     Route: 048
  6. OMEPRAZOLE. [Concomitant]
     Active Substance: OMEPRAZOLE
  7. VENLAFAXINE/VENLAFAXINE HYDROCHLORIDE [Suspect]
     Active Substance: VENLAFAXINE HYDROCHLORIDE
     Indication: DEPRESSION
     Route: 048
  8. MEBEVERINE [Concomitant]
     Active Substance: MEBEVERINE

REACTIONS (2)
  - Drug withdrawal syndrome [Recovered/Resolved with Sequelae]
  - Delirium [Recovered/Resolved with Sequelae]
